FAERS Safety Report 6043507-6 (Version None)
Quarter: 2009Q1

REPORT INFORMATION
  Report Type: 
  Country: None (occurrence: None)
  Receive Date: 20090115
  Receipt Date: 20090106
  Transmission Date: 20090719
  Serious: Yes (Hospitalization)
  Sender: FDA-Public Use
  Company Number: TPG2008A01355

PATIENT
  Age: 56 Year
  Sex: Female

DRUGS (18)
  1. ACTOS [Suspect]
     Indication: RENAL FAILURE
     Dosage: 30 MG (30 MG,1-0-0)   PER ORAL
     Route: 048
     Dates: start: 20070831, end: 20071002
  2. ACTOS [Suspect]
     Indication: TYPE 2 DIABETES MELLITUS
     Dosage: 30 MG (30 MG,1-0-0)   PER ORAL
     Route: 048
     Dates: start: 20070831, end: 20071002
  3. ACTOS [Suspect]
     Indication: RENAL FAILURE
     Dosage: 30 MG (30 MG,1-0-0)   PER ORAL
     Route: 048
     Dates: start: 20071024, end: 20071031
  4. ACTOS [Suspect]
     Indication: TYPE 2 DIABETES MELLITUS
     Dosage: 30 MG (30 MG,1-0-0)   PER ORAL
     Route: 048
     Dates: start: 20071024, end: 20071031
  5. IRBESARTAN [Concomitant]
  6. METOHEXAL SUCC (METOPROLOL TARTRATE) [Concomitant]
  7. LERCANIDIPINE [Concomitant]
  8. ACETYLSALICYLIC ACID SRT [Concomitant]
  9. TORSEMIDE [Concomitant]
  10. ALLOPURINOL [Concomitant]
  11. HUMALOG [Concomitant]
  12. HUMINSULIN BASAL (INSULIN HUMAN) [Concomitant]
  13. PRAVASTATIN [Concomitant]
  14. EZETROL (EZETIMIBE) [Concomitant]
  15. CYNT (MOXONIDINE) [Concomitant]
  16. RAMIPRIL [Concomitant]
  17. INEGY (SIMVASTATIN, EZETIMIEE) [Concomitant]
  18. AQUAPHOR (XIPAMTDE) [Concomitant]

REACTIONS (13)
  - ASTHENIA [None]
  - BLOOD PRESSURE INCREASED [None]
  - CLONUS [None]
  - DIABETIC NEUROPATHY [None]
  - HEAD TITUBATION [None]
  - HYPERGLYCAEMIA [None]
  - MUSCLE TWITCHING [None]
  - NOCTURNAL DYSPNOEA [None]
  - OEDEMA PERIPHERAL [None]
  - PARAESTHESIA ORAL [None]
  - PHOTOPHOBIA [None]
  - RESTLESS LEGS SYNDROME [None]
  - WEIGHT INCREASED [None]
